FAERS Safety Report 5177363-5 (Version None)
Quarter: 2006Q4

REPORT INFORMATION
  Report Type: 
  Country: None (occurrence: None)
  Receive Date: 20061207
  Receipt Date: 20061124
  Transmission Date: 20070319
  Serious: Yes (Other)
  Sender: FDA-Public Use
  Company Number: 2006145450

PATIENT

DRUGS (2)
  1. HALCION [Suspect]
     Dosage: 0.5 MG, ORAL
     Route: 048
  2. GRAMALIL (TIAPRIDE HYDROCHLORIDE) [Concomitant]

REACTIONS (2)
  - BRAIN STEM INFARCTION [None]
  - COMA [None]
